FAERS Safety Report 6102108-1 (Version None)
Quarter: 2009Q1

REPORT INFORMATION
  Report Type: 
  Country: None (occurrence: None)
  Receive Date: 20090304
  Receipt Date: 20090220
  Transmission Date: 20090719
  Serious: Yes (Death)
  Sender: FDA-Public Use
  Company Number: JP-PFIZER INC-2008096345

PATIENT
  Sex: Male

DRUGS (10)
  1. RIFABUTIN [Suspect]
     Indication: MYCOBACTERIUM AVIUM COMPLEX INFECTION
     Dosage: 150 MG, UNK
     Route: 048
     Dates: start: 20081015, end: 20081022
  2. RIFABUTIN [Suspect]
     Dosage: 300 MG, 1X/DAY
     Route: 048
     Dates: start: 20081023, end: 20081102
  3. MEDICON [Concomitant]
     Dates: start: 20081015
  4. FAMOTIDINE [Concomitant]
     Dates: start: 20081015
  5. TULOBUTEROL [Concomitant]
     Dates: start: 20081015
  6. MUCOSOLVAN [Concomitant]
     Dates: start: 20081015
  7. CRAVIT [Concomitant]
     Dates: start: 20081015
  8. ALFAROL [Concomitant]
     Dates: start: 20081015
  9. CLARITHROMYCIN [Concomitant]
     Dates: start: 20081015
  10. LOXOPROFEN SODIUM [Concomitant]
     Route: 048

REACTIONS (2)
  - RESPIRATORY ARREST [None]
  - SPUTUM RETENTION [None]
